FAERS Safety Report 8102042-1 (Version None)
Quarter: 2012Q1

REPORT INFORMATION
  Report Type: 
  Country: None (occurrence: None)
  Receive Date: 20120131
  Receipt Date: 20120124
  Transmission Date: 20120608
  Serious: Yes (Other)
  Sender: FDA-Public Use
  Company Number: US-ASTRAZENECA-2012SE04785

PATIENT
  Sex: Female

DRUGS (3)
  1. CLONIDINE [Concomitant]
  2. CRESTOR [Suspect]
     Route: 048
  3. BYSTOLIC [Concomitant]

REACTIONS (3)
  - MYOCARDIAL INFARCTION [None]
  - ASTHENIA [None]
  - MYALGIA [None]
